FAERS Safety Report 6286645-5 (Version None)
Quarter: 2009Q3

REPORT INFORMATION
  Report Type: 
  Country: None (occurrence: None)
  Receive Date: 20090728
  Receipt Date: 20090717
  Transmission Date: 20100115
  Serious: Yes (Hospitalization)
  Sender: FDA-Public Use
  Company Number: PHHY2009AU29665

PATIENT
  Sex: Female

DRUGS (4)
  1. CLOZARIL [Suspect]
     Dosage: UNK
     Dates: start: 20090218
  2. CLOZARIL [Suspect]
     Dosage: 75 MG/DAY
     Dates: start: 20090312
  3. CLOZARIL [Suspect]
     Dosage: 100 MG/DAY
     Dates: start: 20090319
  4. CLOZARIL [Suspect]
     Dosage: 125 MG/DAY
     Dates: start: 20090326

REACTIONS (1)
  - MENTAL DISORDER [None]
